FAERS Safety Report 9719723 (Version 1)
Quarter: 2013Q4

REPORT INFORMATION
  Report Type: Spontaneous
  Country: US (occurrence: US)
  Receive Date: 20131128
  Receipt Date: 20131128
  Transmission Date: 20140711
  Serious: Yes (Other)
  Sender: FDA-Public Use
  Company Number: US-JNJFOC-20131113438

PATIENT
  Sex: Female
  Weight: 11.79 kg

DRUGS (2)
  1. CHILDREN^S MOTRIN SUSPENSION BERRY FL A VOR [Suspect]
     Route: 048
  2. CHILDREN^S MOTRIN SUSPENSION BERRY FL AVOR [Suspect]
     Indication: PYREXIA
     Dosage: 1 TEASPOON, ONCE
     Route: 048
     Dates: start: 20131119, end: 20131119

REACTIONS (6)
  - Dyspnoea [Not Recovered/Not Resolved]
  - Pharyngeal oedema [Not Recovered/Not Resolved]
  - Eye swelling [Not Recovered/Not Resolved]
  - Lip swelling [Not Recovered/Not Resolved]
  - Hypersensitivity [Not Recovered/Not Resolved]
  - Urticaria [Not Recovered/Not Resolved]
